FAERS Safety Report 7280970-7 (Version None)
Quarter: 2011Q1

REPORT INFORMATION
  Report Type: 
  Country: None (occurrence: None)
  Receive Date: 20110131
  Receipt Date: 20101115
  Transmission Date: 20110831
  Serious: Yes (Hospitalization)
  Sender: FDA-Public Use
  Company Number: JPI-P-010751

PATIENT
  Age: 38 Year
  Sex: Female
  Weight: 58.9676 kg

DRUGS (6)
  1. XYREM [Suspect]
     Indication: INSOMNIA
     Dosage: SEE IMAGE, ORAL
     Route: 048
     Dates: start: 20100409, end: 20100101
  2. XYREM [Suspect]
     Indication: INSOMNIA
     Dosage: SEE IMAGE, ORAL
     Route: 048
     Dates: start: 20100101
  3. XYREM [Suspect]
     Indication: INSOMNIA
     Dosage: SEE IMAGE, ORAL
     Route: 048
     Dates: end: 20100326
  4. XYREM [Suspect]
     Indication: INSOMNIA
     Dosage: SEE IMAGE, ORAL
     Route: 048
     Dates: start: 20090401
  5. UNSPECIFIED PSYCHIATRIC MEDICATION [Concomitant]
  6. UNSPECIFIED MULTIPLE CONCOMITANT MEDICATIONS [Concomitant]

REACTIONS (8)
  - BIPOLAR DISORDER [None]
  - SEASONAL ALLERGY [None]
  - BLOOD POTASSIUM DECREASED [None]
  - CONDITION AGGRAVATED [None]
  - REFUSAL OF TREATMENT BY PATIENT [None]
  - INFLUENZA [None]
  - MUSCLE SPASMS [None]
  - HYPOPHAGIA [None]
